FAERS Safety Report 4822035-7 (Version None)
Quarter: 2005Q4

REPORT INFORMATION
  Report Type: 
  Country: None (occurrence: None)
  Receive Date: 20051107
  Receipt Date: 20051024
  Transmission Date: 20060501
  Serious: Yes (Other)
  Sender: FDA-Public Use
  Company Number: SK-JNJFOC-20051101293

PATIENT
  Sex: Female

DRUGS (2)
  1. ZALDIAR [Suspect]
     Route: 048
  2. ZALDIAR [Suspect]
     Dosage: PRECISE DATES UNKNOWN BUT EVENTS (20OCT05) OCCURRED ONE MONTH AFTER START OF THERAPY.
     Route: 048

REACTIONS (4)
  - ABDOMINAL PAIN UPPER [None]
  - GALLBLADDER PAIN [None]
  - HAEMATEMESIS [None]
  - VOMITING [None]
